FAERS Safety Report 5821284-9 (Version None)
Quarter: 2008Q3

REPORT INFORMATION
  Report Type: 
  Country: None (occurrence: None)
  Receive Date: 20080721
  Receipt Date: 20080709
  Transmission Date: 20090109
  Serious: Yes (Hospitalization)
  Sender: FDA-Public Use
  Company Number: 2008BI002398

PATIENT
  Age: 54 Year
  Sex: Female

DRUGS (3)
  1. AVONEX [Suspect]
     Indication: MULTIPLE SCLEROSIS
     Dosage: 30 UG;BIW;IM; 30 UG;QW;IM
     Route: 030
     Dates: start: 20030916, end: 20040501
  2. AVONEX [Suspect]
     Indication: MULTIPLE SCLEROSIS
     Dosage: 30 UG;BIW;IM; 30 UG;QW;IM
     Route: 030
     Dates: start: 20040501
  3. PROTONIX [Concomitant]

REACTIONS (10)
  - BILIARY DYSKINESIA [None]
  - CHEST PAIN [None]
  - GALLBLADDER ENLARGEMENT [None]
  - GALLBLADDER OEDEMA [None]
  - MURPHY'S SIGN POSITIVE [None]
  - NAUSEA [None]
  - POST PROCEDURAL COMPLICATION [None]
  - POSTOPERATIVE WOUND INFECTION [None]
  - PYREXIA [None]
  - VOMITING [None]
